FAERS Safety Report 9230030 (Version 1)
Quarter: 2013Q1

REPORT INFORMATION
  Report Type: Spontaneous
  Country: US (occurrence: None)
  Receive Date: 20121119
  Receipt Date: 20121119
  Transmission Date: 20140127
  Serious: Yes (Other)
  Sender: FDA-Public Use
  Company Number: CART-1000076

PATIENT
  Age: 33 Year
  Sex: Female

DRUGS (4)
  1. CARTICEL [Suspect]
     Indication: CARTILAGE INJURY
     Route: 014
     Dates: start: 20090406, end: 20100107
  2. VICODIN (HYDROCODONE BITARTRATE, PARACETAMOL) [Concomitant]
  3. MORPHINE [Concomitant]
  4. RELAFEN (NABUMETONE) [Concomitant]

REACTIONS (5)
  - Graft complication [None]
  - Bone cyst [None]
  - Arthropathy [None]
  - Procedural pain [None]
  - Arthralgia [None]
